FAERS Safety Report 4910600-8 (Version None)
Quarter: 2006Q1

REPORT INFORMATION
  Report Type: 
  Country: None (occurrence: None)
  Receive Date: 20060214
  Receipt Date: 20051118
  Transmission Date: 20060701
  Serious: Yes (Hospitalization, Other)
  Sender: FDA-Public Use
  Company Number: GBWYE155821NOV05

PATIENT
  Sex: Female

DRUGS (6)
  1. ENBREL [Suspect]
     Indication: RHEUMATOID ARTHRITIS
     Route: 058
     Dates: start: 20040101
  2. AMILORIDE HYDROCHLORIDE [Concomitant]
  3. THIAZIDE [Concomitant]
  4. SULFASALAZINE [Concomitant]
     Dosage: UNKNOWN
     Route: 065
  5. OXPRENOLOL [Concomitant]
     Dosage: UNKNOWN
     Route: 065
  6. PREDNISOLONE [Concomitant]
     Dosage: SMALL DOSE
     Route: 065

REACTIONS (2)
  - ANGINA PECTORIS [None]
  - CORONARY ARTERY DISEASE [None]
